FAERS Safety Report 8992092 (Version 7)
Quarter: 2013Q4

REPORT INFORMATION
  Report Type: Report from Study
  Country: CA (occurrence: CA)
  Receive Date: 20121231
  Receipt Date: 20131009
  Transmission Date: 20140711
  Serious: Yes (Other)
  Sender: FDA-Public Use
  Company Number: PHHY2012CA121292

PATIENT
  Age: 74 Year
  Sex: Female

DRUGS (13)
  1. WATER PILLS [Concomitant]
  2. TYLENOL [Concomitant]
  3. ZANTAC [Concomitant]
     Dosage: UNK
  4. LIPITOR [Concomitant]
     Dosage: 80 MG, QD
  5. LIPITOR [Concomitant]
     Dosage: 40 MG, QD
  6. ALTACE [Concomitant]
  7. POTASSIUM [Concomitant]
     Dosage: UNK
  8. POTASSIUM [Concomitant]
     Dosage: UNK
  9. TASIGNA [Suspect]
     Indication: CHRONIC MYELOID LEUKAEMIA
     Dosage: 400 MG, BID
     Route: 048
     Dates: start: 201103
  10. TASIGNA [Suspect]
     Dosage: 200 MG, BID
     Route: 048
     Dates: start: 201103
  11. TASIGNA [Suspect]
     Dosage: 200 MG, QD
     Dates: end: 20130314
  12. TASIGNA [Suspect]
     Dosage: 200 MG, BID
     Route: 048
     Dates: start: 20130408, end: 20130626
  13. AGGRENOX [Concomitant]

REACTIONS (13)
  - Hiatus hernia [Unknown]
  - Oesophageal disorder [Unknown]
  - Eructation [Not Recovered/Not Resolved]
  - Feeling abnormal [Unknown]
  - Abdominal pain [Recovering/Resolving]
  - Muscle spasms [Recovered/Resolved]
  - Constipation [Unknown]
  - Flatulence [Unknown]
  - Malaise [Unknown]
  - Vomiting [Not Recovered/Not Resolved]
  - Dyspepsia [Unknown]
  - Diarrhoea [Unknown]
  - Weight decreased [Unknown]
